FAERS Safety Report 5373857-8 (Version None)
Quarter: 2007Q2

REPORT INFORMATION
  Report Type: 
  Country: None (occurrence: None)
  Receive Date: 20070628
  Receipt Date: 20070620
  Transmission Date: 20071010
  Serious: Yes (Death)
  Sender: FDA-Public Use
  Company Number: JP-PFIZER INC-2007033017

PATIENT
  Age: 63 Year
  Sex: Male
  Weight: 49 kg

DRUGS (16)
  1. VFEND [Suspect]
     Indication: BRONCHOPULMONARY ASPERGILLOSIS
     Route: 048
     Dates: start: 20061108, end: 20061109
  2. VFEND [Suspect]
     Route: 048
     Dates: start: 20061207, end: 20070126
  3. VFEND [Suspect]
     Route: 048
     Dates: start: 20070204, end: 20070212
  4. VFEND [Suspect]
     Indication: BRONCHOPULMONARY ASPERGILLOSIS
     Route: 042
     Dates: start: 20061110, end: 20061206
  5. VFEND [Suspect]
     Route: 042
     Dates: start: 20070127, end: 20070203
  6. MICAFUNGIN [Concomitant]
     Dates: start: 20060901, end: 20060928
  7. DIFLUCAN [Concomitant]
     Dates: start: 20060929, end: 20061107
  8. BAKTAR [Concomitant]
     Indication: INFECTION
  9. POLYMYXIN B SULFATE [Concomitant]
     Indication: INFECTION
     Dates: end: 20061207
  10. VANCOMYCIN HCL [Concomitant]
     Indication: INFECTION
     Dates: end: 20061113
  11. ZOVIRAX [Concomitant]
     Indication: INFECTION
  12. PROGRAF [Concomitant]
     Indication: PROPHYLAXIS AGAINST GRAFT VERSUS HOST DISEASE
  13. LEVOFLOXACIN [Concomitant]
     Indication: INFECTION
     Dates: start: 20061108, end: 20061114
  14. PASIL [Concomitant]
     Indication: INFECTION
     Dates: start: 20061115, end: 20061121
  15. UNASYN [Concomitant]
     Indication: INFECTION
     Dates: start: 20061121, end: 20061215
  16. OZEX [Concomitant]
     Indication: INFECTION
     Dates: start: 20061215, end: 20070126

REACTIONS (1)
  - PNEUMONIA [None]
